FAERS Safety Report 5716453-2 (Version None)
Quarter: 2008Q2

REPORT INFORMATION
  Report Type: 
  Country: None (occurrence: None)
  Receive Date: 20080415
  Receipt Date: 20070503
  Transmission Date: 20081010
  Serious: Yes (Other)
  Sender: FDA-Public Use
  Company Number: 2007-02224

PATIENT
  Age: 42 Year
  Sex: Male

DRUGS (2)
  1. FERRLECIT [Suspect]
     Indication: IRON DEFICIENCY ANAEMIA
     Dosage: 125 MG, SINGLE IV PUSH, HEMODIALYSIS
     Route: 010
     Dates: start: 20070503
  2. ARANESP [Concomitant]

REACTIONS (8)
  - ANAPHYLACTOID REACTION [None]
  - CHEST PAIN [None]
  - EYE SWELLING [None]
  - HYPERSENSITIVITY [None]
  - HYPOAESTHESIA [None]
  - LIP SWELLING [None]
  - THROAT TIGHTNESS [None]
  - VOMITING [None]
